FAERS Safety Report 12233682 (Version 1)
Quarter: 2016Q2

REPORT INFORMATION
  Report Type: Spontaneous
  Country: US (occurrence: US)
  Receive Date: 20160404
  Receipt Date: 20160404
  Transmission Date: 20160815
  Serious: No
  Sender: FDA-Public Use
  Company Number: US-BAYER-2016-058998

PATIENT
  Sex: Female

DRUGS (2)
  1. CLARITIN [Suspect]
     Active Substance: LORATADINE
     Indication: OROPHARYNGEAL PAIN
  2. CLARITIN [Suspect]
     Active Substance: LORATADINE
     Indication: UPPER-AIRWAY COUGH SYNDROME
     Dosage: UNK
     Dates: start: 2016

REACTIONS (2)
  - Product use issue [None]
  - Blood pressure increased [None]

NARRATIVE: CASE EVENT DATE: 2016
